FAERS Safety Report 8488445-4 (Version None)
Quarter: 2012Q3

REPORT INFORMATION
  Report Type: 
  Country: None (occurrence: None)
  Receive Date: 20120705
  Receipt Date: 20120702
  Transmission Date: 20120928
  Serious: Yes (Hospitalization)
  Sender: FDA-Public Use
  Company Number: US-BAYER-2011-019361

PATIENT
  Age: 31 Year
  Sex: Female
  Weight: 178 kg

DRUGS (17)
  1. NORGESTIMATE AND ETHINYL ESTRADIOL [Concomitant]
     Dosage: UNK
     Dates: start: 20081229
  2. METHADONE HCL [Concomitant]
     Dosage: 10 MG, UNK
     Dates: start: 20090210
  3. CHANTIX [Concomitant]
     Dosage: UNK
     Route: 048
  4. DIOVAN [Concomitant]
     Dosage: UNK
  5. YASMIN [Suspect]
     Dosage: UNK
  6. FLUCONAZOLE [Concomitant]
     Dosage: 150 MG, UNK
     Dates: start: 20081105
  7. VICODIN [Concomitant]
     Dosage: 7.5 / 750 EVERY 8 TO 10 HOURS
     Route: 048
  8. CEFUROXIME [Concomitant]
     Dosage: 500 BID, X 10 DAYS DAYS
     Route: 048
  9. NICODERM [Concomitant]
     Dosage: UNK
     Route: 062
  10. AUGMENTIN XR [Concomitant]
     Dosage: 1 G, UNK
     Dates: start: 20081105
  11. XANAX [Concomitant]
     Dosage: 2 MG, TID
     Route: 048
  12. RISPERDAL [Concomitant]
     Dosage: UNK
  13. YAZ [Suspect]
     Indication: MENSTRUAL DISORDER
     Dosage: UNK
     Dates: start: 20090202, end: 20090227
  14. DILTIAZEM HYDROCHOLORIDE [Concomitant]
     Dosage: UNK
  15. MEDROL [Concomitant]
     Dosage: UNK
     Route: 048
  16. VITAMIN B-12 [Concomitant]
     Dosage: UNK
  17. ANAPROX DM [Concomitant]
     Dosage: ONE TEASPOON, TWO TIMES DAILY
     Route: 048

REACTIONS (6)
  - PANIC ATTACK [None]
  - DEEP VEIN THROMBOSIS [None]
  - DYSPNOEA [None]
  - PULMONARY EMBOLISM [None]
  - NERVOUSNESS [None]
  - PAIN [None]
